FAERS Safety Report 5426099-1 (Version None)
Quarter: 2007Q3

REPORT INFORMATION
  Report Type: 
  Country: None (occurrence: None)
  Receive Date: 20070823
  Receipt Date: 20070823
  Transmission Date: 20080115
  Serious: Yes (Other)
  Sender: FDA-Public Use
  Company Number: None

PATIENT
  Age: 26 Year
  Sex: Female

DRUGS (1)
  1. LEPIRUDIN [Suspect]

REACTIONS (5)
  - ACTIVATED PARTIAL THROMBOPLASTIN TIME PROLONGED [None]
  - CATHETER SITE HAEMORRHAGE [None]
  - CONDITION AGGRAVATED [None]
  - HAEMOPTYSIS [None]
  - HAEMORRHAGE [None]
